FAERS Safety Report 8914073 (Version 2)
Quarter: 2012Q4

REPORT INFORMATION
  Report Type: 
  Country: US (occurrence: US)
  Receive Date: 20121116
  Receipt Date: 20121231
  Transmission Date: 20130627
  Serious: Yes (Other)
  Sender: FDA-Public Use
  Company Number: US-VERTEX PHARMACEUTICAL INC.-2012-024382

PATIENT
  Age: 46 Year
  Sex: Female

DRUGS (3)
  1. INCIVEK [Suspect]
     Indication: HEPATITIS C
     Dosage: 750 mg, tid
     Route: 048
     Dates: start: 20121022, end: 20121102
  2. RIBAVIRIN [Suspect]
     Indication: HEPATITIS C
     Dosage: 1000 mg, qd
     Route: 048
     Dates: start: 20121022, end: 20121031
  3. PEGASYS [Suspect]
     Indication: HEPATITIS C
     Dosage: 180 ?g, qw
     Route: 058
     Dates: start: 20121022, end: 20121031

REACTIONS (3)
  - Hepatic cirrhosis [Not Recovered/Not Resolved]
  - Weight increased [Recovered/Resolved]
  - Ascites [Recovered/Resolved]
